FAERS Safety Report 8936086 (Version 3)
Quarter: 2013Q2

REPORT INFORMATION
  Report Type: Spontaneous
  Country: US (occurrence: US)
  Receive Date: 20121130
  Receipt Date: 20130514
  Transmission Date: 20140414
  Serious: No
  Sender: FDA-Public Use
  Company Number: US-009507513-1211USA011714

PATIENT
  Age: 3 Year
  Sex: Male
  Weight: 24.49 kg

DRUGS (4)
  1. CLARITIN REDITABS 12HR [Suspect]
     Indication: SNEEZING
     Dosage: 5 MG, Q12H
     Route: 048
     Dates: start: 20120922, end: 20120928
  2. CLARITIN REDITABS 12HR [Suspect]
     Indication: LACRIMATION INCREASED
  3. CLARITIN REDITABS 12HR [Suspect]
     Indication: MEDICAL OBSERVATION
  4. VITAMINS (UNSPECIFIED) [Concomitant]
     Indication: PRODUCT USED FOR UNKNOWN INDICATION
     Dosage: UNK, UNKNOWN

REACTIONS (1)
  - Drug ineffective [Unknown]
